FAERS Safety Report 4493040-8 (Version None)
Quarter: 2004Q4

REPORT INFORMATION
  Report Type: 
  Country: None (occurrence: None)
  Receive Date: 20041101
  Receipt Date: 20041019
  Transmission Date: 20050328
  Serious: Yes (Death, Other)
  Sender: FDA-Public Use
  Company Number: 2004239796TR

PATIENT
  Age: 52 Year
  Sex: Male

DRUGS (4)
  1. CYTOSAR-U [Suspect]
     Indication: ACUTE MYELOID LEUKAEMIA
     Dosage: 100 MG/M2, QD
  2. IDAMYCIN [Suspect]
     Indication: ACUTE MYELOID LEUKAEMIA
     Dosage: 12 MG/M2 QD, FOR 3 DAYS
  3. DIPYRIDAMOLE [Suspect]
     Dosage: 75 MG, TID, FOR 5 DAYS
  4. ONDANSETRON HCL [Concomitant]

REACTIONS (10)
  - ACUTE MYELOID LEUKAEMIA [None]
  - DRUG INTERACTION [None]
  - DYSPNOEA [None]
  - FEBRILE NEUTROPENIA [None]
  - HEPATOTOXICITY [None]
  - LEUKAEMIA RECURRENT [None]
  - MULTI-ORGAN FAILURE [None]
  - PAIN IN EXTREMITY [None]
  - PERIPHERAL OCCLUSIVE DISEASE [None]
  - SEPSIS [None]
